FAERS Safety Report 9949339 (Version 2)
Quarter: 2014Q2

REPORT INFORMATION
  Report Type: Spontaneous
  Country: US (occurrence: US)
  Receive Date: 20140304
  Receipt Date: 20140617
  Transmission Date: 20141212
  Serious: Yes (Other)
  Sender: FDA-Public Use
  Company Number: US-PFIZER INC-2014057016

PATIENT
  Age: 8 Year
  Sex: Female
  Weight: 24.9 kg

DRUGS (1)
  1. GENOTROPIN [Suspect]
     Indication: TURNER^S SYNDROME
     Dosage: 1.6 MG, DAILY
     Route: 058
     Dates: start: 2007

REACTIONS (1)
  - Otitis media [Unknown]
